FAERS Safety Report 8132604-7 (Version None)
Quarter: 2012Q1

REPORT INFORMATION
  Report Type: 
  Country: None (occurrence: None)
  Receive Date: 20120213
  Receipt Date: 20120202
  Transmission Date: 20120608
  Serious: Yes (Death, Hospitalization)
  Sender: FDA-Public Use
  Company Number: US-GLAXOSMITHKLINE-A0875779A

PATIENT
  Age: 74 Year
  Sex: Male
  Weight: 71.4 kg

DRUGS (1)
  1. AVANDIA [Suspect]
     Indication: DIABETES MELLITUS
     Dosage: 8MG PER DAY
     Route: 048
     Dates: start: 20031111, end: 20070101

REACTIONS (8)
  - CAROTID ARTERY STENOSIS [None]
  - PLEURAL EFFUSION [None]
  - MOBILITY DECREASED [None]
  - PNEUMOTHORAX [None]
  - DEATH [None]
  - CARDIAC FAILURE CONGESTIVE [None]
  - ANHEDONIA [None]
  - EMOTIONAL DISORDER [None]
